FAERS Safety Report 18807332 (Version 2)
Quarter: 2021Q1

REPORT INFORMATION
  Report Type: Spontaneous
  Country: FR (occurrence: FR)
  Receive Date: 20210129
  Receipt Date: 20210329
  Transmission Date: 20210419
  Serious: Yes (Other)
  Sender: FDA-Public Use
  Company Number: FR-PFIZER INC-2021056841

PATIENT
  Age: 38 Year
  Sex: Female

DRUGS (3)
  1. POLYSORBATE 80. [Interacting]
     Active Substance: POLYSORBATE 80
     Dosage: UNK
  2. NIVESTIM [Suspect]
     Active Substance: FILGRASTIM
     Dosage: UNK
  3. POLYETHYLENE GLYCOL COMPOUND (MACROGOL) [Interacting]
     Active Substance: POLYETHYLENE GLYCOLS
     Dosage: UNK

REACTIONS (3)
  - Anaphylactic shock [Unknown]
  - Anaphylactic reaction [Unknown]
  - Drug interaction [Unknown]
